FAERS Safety Report 16227594 (Version 1)
Quarter: 2019Q2

REPORT INFORMATION
  Report Type: Spontaneous
  Country: CA (occurrence: CA)
  Receive Date: 20190422
  Receipt Date: 20190422
  Transmission Date: 20190711
  Serious: Yes (Disabling)
  Sender: FDA-Public Use
  Company Number: None

PATIENT
  Age: 36 Year
  Sex: Male
  Weight: 74.25 kg

DRUGS (1)
  1. CIPROFLOXIN [Suspect]
     Active Substance: CIPROFLOXACIN
     Indication: URINARY TRACT INFECTION
     Dosage: ?          QUANTITY:30 TABLET(S);?
     Route: 048
     Dates: start: 20190118, end: 20190120

REACTIONS (4)
  - Neuropathy peripheral [None]
  - Fatigue [None]
  - Anxiety [None]
  - Tendonitis [None]

NARRATIVE: CASE EVENT DATE: 20190121
